FAERS Safety Report 8795561 (Version 1)
Quarter: 2012Q4

REPORT INFORMATION
  Report Type: 
  Country: US (occurrence: US)
  Receive Date: 20120917
  Receipt Date: 20120917
  Transmission Date: 20130627
  Serious: Yes (Hospitalization)
  Sender: FDA-Public Use
  Company Number: US-ELI_LILLY_AND_COMPANY-US201202004671

PATIENT
  Age: 80 Year
  Sex: Female

DRUGS (12)
  1. FORTEO [Suspect]
     Indication: OSTEOPOROSIS
     Dosage: 20 ug, qd
     Route: 065
     Dates: start: 2011, end: 20120829
  2. FORTEO [Suspect]
     Dosage: 20 ug, qd
     Route: 065
     Dates: start: 2011, end: 20120829
  3. FORTEO [Suspect]
     Dosage: 20 ug, qd
     Dates: start: 2011, end: 20120829
  4. TRAMADOL [Concomitant]
     Dosage: 50 mg, bid
  5. ASPIRIN [Concomitant]
     Dosage: 81 mg, qd
  6. IRON [Concomitant]
     Dosage: 325 mg, qd
  7. SIMVASTATIN [Concomitant]
     Dosage: 20 mg, qd
  8. SPIRONOLACTONE [Concomitant]
     Dosage: 25 mg, qd
  9. METOPROLOL [Concomitant]
     Dosage: 25 mg, qd
  10. FAMOTIDINE [Concomitant]
     Dosage: 20 mg, qd
  11. TORSEMIDE [Concomitant]
     Dosage: 10 mg, qd
  12. STOOL SOFTENER [Concomitant]
     Dosage: 100 mg, qd

REACTIONS (13)
  - Aortic valve replacement [Unknown]
  - Fracture [Unknown]
  - Back injury [Unknown]
  - Pain in extremity [Not Recovered/Not Resolved]
  - Oedema peripheral [Unknown]
  - Fall [Recovered/Resolved]
  - Fall [Recovered/Resolved]
  - Sleep disorder due to a general medical condition [Unknown]
  - Frustration [Unknown]
  - Arthritis [Unknown]
  - Hearing impaired [Unknown]
  - Arthralgia [Not Recovered/Not Resolved]
  - Constipation [Recovering/Resolving]
